FAERS Safety Report 24740645 (Version 1)
Quarter: 2024Q4

REPORT INFORMATION
  Report Type: Spontaneous
  Country: US (occurrence: US)
  Receive Date: 20241217
  Receipt Date: 20241217
  Transmission Date: 20250114
  Serious: No
  Sender: AUROBINDO
  Company Number: US-AUROBINDO-AUR-APL-2023-079278

PATIENT
  Age: 26 Year
  Sex: Male
  Weight: 72.5 kg

DRUGS (1)
  1. FINASTERIDE [Suspect]
     Active Substance: FINASTERIDE
     Indication: Alopecia
     Dosage: 1 MILLIGRAM, ONCE A DAY
     Route: 048
     Dates: start: 20230530, end: 20230530

REACTIONS (4)
  - Muscle spasms [Not Recovered/Not Resolved]
  - Sexual dysfunction [Not Recovered/Not Resolved]
  - Muscle twitching [Not Recovered/Not Resolved]
  - Libido decreased [Not Recovered/Not Resolved]
